FAERS Safety Report 9054196 (Version 1)
Quarter: 2013Q1

REPORT INFORMATION
  Report Type: Report from Study
  Country: BR (occurrence: BR)
  Receive Date: 20130208
  Receipt Date: 20130208
  Transmission Date: 20140127
  Serious: Yes (Other)
  Sender: FDA-Public Use
  Company Number: BR-ABBOTT-13P-020-1047012-00

PATIENT
  Age: 65 None
  Sex: Female
  Weight: 60 kg

DRUGS (5)
  1. HUMIRA [Suspect]
     Indication: RHEUMATOID ARTHRITIS
     Route: 058
     Dates: start: 20090601, end: 20120119
  2. PREDNISONE [Concomitant]
     Indication: PAIN
     Dosage: AT NIGHT
     Route: 048
     Dates: start: 2009
  3. UNSPECIFIED DRUG REPORTED AS PREBROSIL [Concomitant]
     Indication: PAIN
     Route: 048
     Dates: start: 2009
  4. METHYLDOPA [Concomitant]
     Indication: HYPERTENSION
     Dosage: IN THE MORNING AND AT NIGHT
     Route: 048
     Dates: start: 2007
  5. OMEPRAZOLE [Concomitant]
     Indication: GASTRIC DISORDER
     Dosage: IN THE MORNING
     Route: 048
     Dates: start: 2009

REACTIONS (5)
  - Pulmonary arterial hypertension [Not Recovered/Not Resolved]
  - Arthropathy [Recovered/Resolved]
  - Influenza [Recovered/Resolved]
  - Weight decreased [Unknown]
  - Gastrointestinal infection [Recovered/Resolved]
